FAERS Safety Report 5453137-2 (Version None)
Quarter: 2007Q3

REPORT INFORMATION
  Report Type: 
  Country: None (occurrence: None)
  Receive Date: 20070914
  Receipt Date: 20070903
  Transmission Date: 20080115
  Serious: Yes (Other)
  Sender: FDA-Public Use
  Company Number: DE-PFIZER INC-2007068281

PATIENT
  Sex: Female
  Weight: 58 kg

DRUGS (4)
  1. LYRICA [Suspect]
     Indication: ANXIETY DISORDER
     Route: 048
     Dates: start: 20070522, end: 20070523
  2. LYRICA [Suspect]
     Indication: PSYCHOGENIC PAIN DISORDER
  3. LORAZEPAM [Concomitant]
  4. DOXEPIN HCL [Concomitant]

REACTIONS (12)
  - ABASIA [None]
  - COORDINATION ABNORMAL [None]
  - DIZZINESS [None]
  - FATIGUE [None]
  - FEELING DRUNK [None]
  - HEADACHE [None]
  - NAUSEA [None]
  - SLEEP ATTACKS [None]
  - SOMATOFORM DISORDER [None]
  - SPEECH DISORDER [None]
  - TACHYCARDIA [None]
  - TREMOR [None]
